FAERS Safety Report 4349506-4 (Version None)
Quarter: 2004Q2

REPORT INFORMATION
  Report Type: 
  Country: None (occurrence: None)
  Receive Date: 20040426
  Receipt Date: 20040415
  Transmission Date: 20050107
  Serious: Yes (Other)
  Sender: FDA-Public Use
  Company Number: US-JNJFOC-20040403582

PATIENT
  Age: 51 Year
  Sex: Female

DRUGS (1)
  1. DURAGESIC [Suspect]
     Indication: PAIN
     Dosage: 50 UG/HR, 1 IN 72 HOUR, TRANSDERMAL
     Route: 062
     Dates: start: 20030701

REACTIONS (10)
  - BURN OF INTERNAL ORGANS [None]
  - CAUSTIC INJURY [None]
  - CHEMICAL BURN OF SKIN [None]
  - CONVULSION [None]
  - DYSKINESIA [None]
  - HYPOAESTHESIA [None]
  - INSOMNIA [None]
  - LISTLESS [None]
  - LUNG INJURY [None]
  - RESTLESSNESS [None]
